FAERS Safety Report 10391462 (Version 1)
Quarter: 2014Q3

REPORT INFORMATION
  Report Type: Spontaneous
  Country: US (occurrence: US)
  Receive Date: 20140818
  Receipt Date: 20140818
  Transmission Date: 20150326
  Serious: Yes (Life-Threatening, Hospitalization)
  Sender: FDA-Public Use
  Company Number: US-MYLANLABS-2014M1001587

PATIENT

DRUGS (7)
  1. RASAGILINE [Interacting]
     Active Substance: RASAGILINE
     Dosage: 1MG DAILY
  2. AMANTADINE [Concomitant]
     Active Substance: AMANTADINE
     Dosage: 200MG DAILY
     Route: 048
  3. CLOZAPINE. [Concomitant]
     Active Substance: CLOZAPINE
     Dosage: 25MG DAILY
     Route: 048
  4. DEPAKOTE [Concomitant]
     Active Substance: DIVALPROEX SODIUM
     Dosage: 1.25G DAILY
     Route: 048
  5. TRAMADOL [Suspect]
     Active Substance: TRAMADOL
     Indication: ANALGESIC THERAPY
     Route: 048
  6. ZIPRASIDONE [Interacting]
     Active Substance: ZIPRASIDONE
     Indication: HALLUCINATION
     Dosage: 20MG DAILY
     Route: 048
  7. ANTI-PARKINSON [Concomitant]
     Dosage: 25/100MG 4 TIMES DAILY
     Route: 065

REACTIONS (2)
  - Serotonin syndrome [Unknown]
  - Drug interaction [Unknown]
